FAERS Safety Report 7988973-1 (Version None)
Quarter: 2011Q4

REPORT INFORMATION
  Report Type: 
  Country: None (occurrence: None)
  Receive Date: 20111219
  Receipt Date: 20111206
  Transmission Date: 20120403
  Serious: Yes (Other)
  Sender: FDA-Public Use
  Company Number: NL-GENZYME-THYM-1002991

PATIENT
  Sex: Male

DRUGS (2)
  1. THYMOGLOBULIN [Suspect]
     Indication: BONE MARROW CONDITIONING REGIMEN
     Dosage: 2 MG/KG, QD
     Route: 042
  2. METHYLPREDNISOLONE [Concomitant]
     Indication: PREMEDICATION
     Route: 065

REACTIONS (9)
  - DYSPNOEA [None]
  - CHEST DISCOMFORT [None]
  - CHILLS [None]
  - NAUSEA [None]
  - TACHYCARDIA [None]
  - HEADACHE [None]
  - HYPOTENSION [None]
  - VOMITING [None]
  - PYREXIA [None]
